FAERS Safety Report 5353054-2 (Version None)
Quarter: 2007Q2

REPORT INFORMATION
  Report Type: 
  Country: None (occurrence: None)
  Receive Date: 20070606
  Receipt Date: 20070601
  Transmission Date: 20071010
  Serious: Yes (Other)
  Sender: FDA-Public Use
  Company Number: STI-2007-00085(1)

PATIENT
  Age: 22 Year
  Sex: Female

DRUGS (3)
  1. DUAC [Suspect]
     Indication: ACNE
     Dosage: 1 DOSAGE FORM ( 1 DOSAGE FORM, AT NIGHT)TOPICAL
     Route: 061
     Dates: start: 20060701, end: 20061201
  2. MINOCYCLINE HCL [Suspect]
     Dosage: (1 IN 1 DAYS) ORAL
     Route: 048
  3. ISOTRETINOIN [Concomitant]

REACTIONS (1)
  - NEUTROPENIA [None]
